FAERS Safety Report 7109089-2 (Version None)
Quarter: 2010Q4

REPORT INFORMATION
  Report Type: 
  Country: None (occurrence: None)
  Receive Date: 20101117
  Receipt Date: 20101101
  Transmission Date: 20110411
  Serious: Yes (Other)
  Sender: FDA-Public Use
  Company Number: PHHY2010BR09957

PATIENT
  Sex: Female
  Weight: 44 kg

DRUGS (3)
  1. ACLASTA [Suspect]
     Indication: OSTEOPENIA
     Dosage: 5MG/100ML
     Dates: start: 20100108
  2. PANTOPRAZOLE [Concomitant]
     Dosage: 40 MG DAILY
     Route: 048
  3. CLORIDRATO DE PAROXETINA [Concomitant]

REACTIONS (12)
  - ABDOMINAL PAIN UPPER [None]
  - DYSPEPSIA [None]
  - HEAD DISCOMFORT [None]
  - HEADACHE [None]
  - INFLUENZA [None]
  - MALAISE [None]
  - MALIGNANT MELANOMA [None]
  - MIGRAINE [None]
  - NIGHTMARE [None]
  - PIGMENTATION DISORDER [None]
  - RHINORRHOEA [None]
  - THROAT IRRITATION [None]
